FAERS Safety Report 8447993-3 (Version None)
Quarter: 2012Q2

REPORT INFORMATION
  Report Type: 
  Country: None (occurrence: None)
  Receive Date: 20120619
  Receipt Date: 20120613
  Transmission Date: 20120825
  Serious: Yes (Other)
  Sender: FDA-Public Use
  Company Number: US-BAYER-2012-015712

PATIENT
  Age: 57 Year
  Sex: Female

DRUGS (6)
  1. ZOLOFT [Concomitant]
  2. ASPIRIN [Concomitant]
  3. BETASERON [Suspect]
     Dosage: 8 MIU, QOD
     Route: 058
  4. BACLOFEN [Concomitant]
  5. BETASERON [Suspect]
     Indication: PROGRESSIVE RELAPSING MULTIPLE SCLEROSIS
     Dosage: 8 MIU, QOD
     Route: 058
     Dates: start: 20100604
  6. CALCIUM [Concomitant]

REACTIONS (11)
  - HEADACHE [None]
  - FEELING COLD [None]
  - FAECAL INCONTINENCE [None]
  - CHILLS [None]
  - TREMOR [None]
  - MUSCULOSKELETAL STIFFNESS [None]
  - FATIGUE [None]
  - CONVULSION [None]
  - MUSCLE RIGIDITY [None]
  - HYPERSOMNIA [None]
  - INFLUENZA LIKE ILLNESS [None]
